FAERS Safety Report 4308882-9 (Version None)
Quarter: 2004Q1

REPORT INFORMATION
  Report Type: 
  Country: None (occurrence: None)
  Receive Date: 20040302
  Receipt Date: 20030110
  Transmission Date: 20041129
  Serious: Yes (Hospitalization)
  Sender: FDA-Public Use
  Company Number: PHHO2003FR00765

PATIENT
  Age: 83 Year
  Sex: Male
  Weight: 63 kg

DRUGS (4)
  1. ZOLEDRONATE VS RISEDRONATE [Suspect]
     Indication: OSTEITIS DEFORMANS
     Dosage: 5 MG, ONCE/SINGLE
     Route: 042
     Dates: start: 20020930
  2. CACIT D3 [Concomitant]
     Indication: OSTEITIS DEFORMANS
     Dosage: UNK, QD
     Route: 048
     Dates: start: 20020925
  3. LOPRIL [Concomitant]
     Indication: HYPERTENSION
     Dosage: 50 MG, BID
     Route: 048
     Dates: start: 19960101
  4. CHRONADALATE [Concomitant]
     Indication: HYPERTENSION
     Dosage: 20 MG, QD
     Route: 048
     Dates: start: 19900101

REACTIONS (18)
  - AKINESIA [None]
  - ASTERIXIS [None]
  - BACK PAIN [None]
  - BALANCE DISORDER [None]
  - BLOOD ALKALINE PHOSPHATASE INCREASED [None]
  - CEREBRAL ATROPHY [None]
  - CONFUSIONAL STATE [None]
  - DIFFICULTY IN WALKING [None]
  - DYSSTASIA [None]
  - EXTRAPYRAMIDAL DISORDER [None]
  - HYPERTONIA [None]
  - LUMBAR VERTEBRAL FRACTURE [None]
  - MOTOR DYSFUNCTION [None]
  - MYELITIS [None]
  - PAIN [None]
  - PARAPARESIS [None]
  - PSYCHOMOTOR RETARDATION [None]
  - URINARY TRACT INFECTION [None]
